FAERS Safety Report 4451925-2 (Version None)
Quarter: 2004Q3

REPORT INFORMATION
  Report Type: 
  Country: None (occurrence: None)
  Receive Date: 20040917
  Receipt Date: 20040625
  Transmission Date: 20050211
  Serious: Yes (Hospitalization)
  Sender: FDA-Public Use
  Company Number: 200416420GDDC

PATIENT
  Age: 47 Year
  Sex: Male
  Weight: 79.6 kg

DRUGS (4)
  1. NATRILIX - SLOW RELEASE [Suspect]
     Indication: HYPERTENSION
     Route: 048
     Dates: start: 20030301, end: 20040523
  2. AMLODIPINE [Suspect]
     Indication: HYPERTENSION
     Route: 048
     Dates: start: 20030901, end: 20040523
  3. IRBESARTAN [Suspect]
     Indication: HYPERTENSION
     Route: 048
     Dates: start: 20030301, end: 20040523
  4. SANDOSTATIN LAR [Concomitant]
     Dosage: DOSE: UNK
     Dates: start: 20040424

REACTIONS (3)
  - CIRCULATORY COLLAPSE [None]
  - DISEASE PROGRESSION [None]
  - HYPOTENSION [None]
